FAERS Safety Report 16064024 (Version 1)
Quarter: 2019Q1

REPORT INFORMATION
  Report Type: Spontaneous
  Country: RU (occurrence: RU)
  Receive Date: 20190312
  Receipt Date: 20190312
  Transmission Date: 20190418
  Serious: Yes (Hospitalization, Disabling)
  Sender: FDA-Public Use
  Company Number: RU-BAYER-2018-234578

PATIENT
  Age: 25 Year
  Sex: Female
  Weight: 165 kg

DRUGS (1)
  1. YARINA [Suspect]
     Active Substance: DROSPIRENONE\ETHINYL ESTRADIOL
     Indication: CONTRACEPTION
     Dosage: UNK
     Route: 048
     Dates: start: 201808, end: 201810

REACTIONS (11)
  - Hypoaesthesia [None]
  - Limb discomfort [None]
  - Oedema [None]
  - Peripheral swelling [None]
  - Loss of consciousness [None]
  - Gait disturbance [None]
  - Back pain [None]
  - Pain in extremity [None]
  - General physical health deterioration [None]
  - Thrombosis [None]
  - Pelvic venous thrombosis [None]

NARRATIVE: CASE EVENT DATE: 20181026
